FAERS Safety Report 15266189 (Version 2)
Quarter: 2018Q3

REPORT INFORMATION
  Report Type: Spontaneous
  Country: GB (occurrence: GB)
  Receive Date: 20180810
  Receipt Date: 20180904
  Transmission Date: 20181010
  Serious: Yes (Other)
  Sender: FDA-Public Use
  Company Number: GB-TEVA-2018-GB-859662

PATIENT
  Age: 66 Year
  Sex: Female

DRUGS (2)
  1. AMOXICILLIN CAPSULES 500MG [Suspect]
     Active Substance: AMOXICILLIN
     Indication: LOWER RESPIRATORY TRACT INFECTION
     Dosage: 1500 MILLIGRAM DAILY; 500 MG, TID
     Route: 048
     Dates: start: 20171211
  2. PREDNISOLONE STEROIDS [Concomitant]
     Indication: PRODUCT USED FOR UNKNOWN INDICATION
     Dosage: 6 PER DAY
     Route: 065

REACTIONS (3)
  - Asthma [Recovering/Resolving]
  - Lower respiratory tract infection [Recovered/Resolved]
  - Condition aggravated [Recovered/Resolved]

NARRATIVE: CASE EVENT DATE: 20171201
